FAERS Safety Report 23157050 (Version 1)
Quarter: 2023Q4

REPORT INFORMATION
  Report Type: Spontaneous
  Country: RS (occurrence: RS)
  Receive Date: 20231108
  Receipt Date: 20231108
  Transmission Date: 20240109
  Serious: Yes (Other)
  Sender: FDA-Public Use
  Company Number: RS-AMGEN-SRBSP2023195151

PATIENT
  Age: 64 Year
  Sex: Female

DRUGS (4)
  1. VECTIBIX [Suspect]
     Active Substance: PANITUMUMAB
     Indication: Adenocarcinoma
     Dosage: 6 MILLIGRAM/KILOGRAM
     Route: 065
     Dates: start: 202207
  2. LEUCOVORIN [Suspect]
     Active Substance: LEUCOVORIN\LEUCOVORIN CALCIUM
     Indication: Adenocarcinoma
     Dosage: 400 MILLIGRAM/SQ. METER, Q2WK
     Route: 065
     Dates: start: 202207
  3. FLUOROURACIL [Suspect]
     Active Substance: FLUOROURACIL
     Indication: Adenocarcinoma
     Dosage: 400 MILLIGRAM/SQ. METER, Q2WK (EVERY 2 WEEKS)
     Route: 065
     Dates: start: 202207
  4. IRINOTECAN [Suspect]
     Active Substance: IRINOTECAN
     Indication: Adenocarcinoma
     Dosage: 180 MILLIGRAM/SQ. METER, Q2WK
     Route: 065
     Dates: start: 202207

REACTIONS (4)
  - Spinal fracture [Unknown]
  - Spinal pain [Unknown]
  - Therapy partial responder [Unknown]
  - Rash [Unknown]

NARRATIVE: CASE EVENT DATE: 20220701
